FAERS Safety Report 12959718 (Version 1)
Quarter: 2016Q4

REPORT INFORMATION
  Report Type: Spontaneous
  Country: US (occurrence: US)
  Receive Date: 20161121
  Receipt Date: 20161121
  Transmission Date: 20170207
  Serious: No
  Sender: FDA-Public Use
  Company Number: US-JNJFOC-20161006857

PATIENT
  Sex: Female

DRUGS (3)
  1. TYLENOL 8 HOUR CAPLET [Suspect]
     Active Substance: ACETAMINOPHEN
     Route: 048
  2. XARELTO [Concomitant]
     Active Substance: RIVAROXABAN
     Indication: PRODUCT USED FOR UNKNOWN INDICATION
     Route: 065
  3. TYLENOL 8 HOUR CAPLET [Suspect]
     Active Substance: ACETAMINOPHEN
     Indication: ARTHRALGIA
     Route: 048

REACTIONS (3)
  - Drug effect incomplete [Unknown]
  - Off label use [Unknown]
  - Drug prescribing error [Unknown]
